FAERS Safety Report 5241423-0 (Version None)
Quarter: 2007Q1

REPORT INFORMATION
  Report Type: 
  Country: None (occurrence: None)
  Receive Date: 20070212
  Receipt Date: 20070212
  Transmission Date: 20070707
  Serious: Yes (Life-Threatening, Other)
  Sender: FDA-Public Use
  Company Number: None

PATIENT
  Age: 42 Year
  Sex: Female
  Weight: 113.3993 kg

DRUGS (2)
  1. LEVAQUIN [Suspect]
     Indication: DISEASE RECURRENCE
     Dosage: 250  2 X DAILY  PO
     Route: 048
     Dates: start: 20061001, end: 20061015
  2. LEVAQUIN [Suspect]
     Indication: ESCHERICHIA URINARY TRACT INFECTION
     Dosage: 250  2 X DAILY  PO
     Route: 048
     Dates: start: 20061001, end: 20061015

REACTIONS (1)
  - ANAPHYLACTIC SHOCK [None]
